FAERS Safety Report 4625663-7 (Version None)
Quarter: 2005Q1

REPORT INFORMATION
  Report Type: 
  Country: None (occurrence: None)
  Receive Date: 20050330
  Receipt Date: 20050310
  Transmission Date: 20050727
  Serious: Yes (Other)
  Sender: FDA-Public Use
  Company Number: DE_050315447

PATIENT
  Age: 49 Year
  Sex: Female

DRUGS (5)
  1. CYMBALTA [Suspect]
     Indication: ANXIETY
     Dosage: 60 MG DAY
     Dates: start: 20050309, end: 20050309
  2. CYMBALTA [Suspect]
     Indication: DEPRESSION
     Dosage: 60 MG DAY
     Dates: start: 20050309, end: 20050309
  3. CYMBALTA [Suspect]
     Indication: SOMATISATION DISORDER
     Dosage: 60 MG DAY
     Dates: start: 20050309, end: 20050309
  4. YENTREVE (DULOXETINE HYDROCHLORIDE) [Suspect]
     Indication: DEPRESSION
     Dosage: 40 MG DAY
     Dates: start: 20050210, end: 20050313
  5. ZYPREXA [Concomitant]

REACTIONS (2)
  - HYPERTENSION [None]
  - RENAL IMPAIRMENT [None]
